FAERS Safety Report 11509664 (Version 1)
Quarter: 2015Q3

REPORT INFORMATION
  Report Type: Spontaneous
  Country: US (occurrence: US)
  Receive Date: 20150915
  Receipt Date: 20150915
  Transmission Date: 20151125
  Serious: No
  Sender: FDA-Public Use
  Company Number: US-JNJFOC-20150604849

PATIENT
  Age: 2 Month
  Sex: Female
  Weight: 6.8 kg

DRUGS (1)
  1. INFANTS TYLENOL [Suspect]
     Active Substance: ACETAMINOPHEN
     Indication: TEETHING
     Dosage: 4 TIMES PER DAY, 3 TIMES EVERY OTHER WEEK, AS NEEDED
     Route: 048

REACTIONS (1)
  - Incorrect dose administered [Unknown]
